FAERS Safety Report 4829394-X (Version None)
Quarter: 2005Q4

REPORT INFORMATION
  Report Type: 
  Country: None (occurrence: None)
  Receive Date: 20051028
  Receipt Date: 20050429
  Transmission Date: 20060501
  Serious: No
  Sender: FDA-Public Use
  Company Number: US130200

PATIENT
  Age: 63 Year
  Sex: Male

DRUGS (6)
  1. SENSIPAR [Suspect]
     Indication: HYPERPARATHYROIDISM SECONDARY
     Dosage: 30 MG, 1 IN 1 DAYS, PO
     Route: 048
     Dates: start: 20050329
  2. EPOGEN (EPOETIN ALFA) (EPOETIN ALFA) [Concomitant]
  3. CLOPIDOGREL BISULFATE [Concomitant]
  4. GABAPENTIN [Concomitant]
  5. NOVOLIN 70/30 [Concomitant]
  6. PARICALCITOL [Concomitant]

REACTIONS (1)
  - BONE PAIN [None]
